FAERS Safety Report 6241130-1 (Version None)
Quarter: 2009Q2

REPORT INFORMATION
  Report Type: 
  Country: None (occurrence: None)
  Receive Date: 20090619
  Receipt Date: 20090605
  Transmission Date: 20091009
  Serious: Yes (Death)
  Sender: FDA-Public Use
  Company Number: KADN20090050

PATIENT
  Age: 53 Year
  Sex: Female

DRUGS (1)
  1. MORPHINE [Suspect]
     Indication: DRUG USE FOR UNKNOWN INDICATION
     Dates: end: 20070101

REACTIONS (3)
  - BRAIN OEDEMA [None]
  - DRUG TOXICITY [None]
  - PULMONARY HAEMORRHAGE [None]
